FAERS Safety Report 6906186-9 (Version None)
Quarter: 2010Q3

REPORT INFORMATION
  Report Type: 
  Country: None (occurrence: None)
  Receive Date: 20100804
  Receipt Date: 20100802
  Transmission Date: 20110219
  Serious: Yes (Hospitalization, Other)
  Sender: FDA-Public Use
  Company Number: US-MERCK-0801USA03085

PATIENT
  Age: 66 Year
  Sex: Female
  Weight: 60 kg

DRUGS (2)
  1. FOSAMAX [Suspect]
     Indication: OSTEOPOROSIS
     Route: 048
     Dates: start: 19980101, end: 20070101
  2. LITHIUM CARBONATE [Concomitant]
     Indication: BIPOLAR DISORDER
     Route: 065
     Dates: start: 19850101, end: 20040101

REACTIONS (44)
  - ABSCESS ORAL [None]
  - ADVERSE DRUG REACTION [None]
  - ANAEMIA [None]
  - ANXIETY [None]
  - ARTHRALGIA [None]
  - ASTHENIA [None]
  - BLOOD AMYLASE INCREASED [None]
  - BLOOD POTASSIUM DECREASED [None]
  - BRADYCARDIA [None]
  - CATARACT [None]
  - COLONIC POLYP [None]
  - DECUBITUS ULCER [None]
  - DEPRESSION [None]
  - DIABETES INSIPIDUS [None]
  - EYE DISORDER [None]
  - FALL [None]
  - FATIGUE [None]
  - GASTRITIS [None]
  - HAEMATOCHEZIA [None]
  - HYPERTENSION [None]
  - HYPOKALAEMIA [None]
  - HYPOPARATHYROIDISM [None]
  - HYPOXIA [None]
  - INFECTION [None]
  - LIPIDS INCREASED [None]
  - MUSCLE SPASMS [None]
  - NEPHROGENIC DIABETES INSIPIDUS [None]
  - OSTEOARTHRITIS [None]
  - OSTEONECROSIS OF JAW [None]
  - OSTEOPENIA [None]
  - OVERDOSE [None]
  - PAIN IN EXTREMITY [None]
  - PARATHYROID DISORDER [None]
  - PELVIC PAIN [None]
  - PHOTOSENSITIVITY REACTION [None]
  - RHABDOMYOLYSIS [None]
  - SKIN ULCER [None]
  - STRESS [None]
  - SUICIDE ATTEMPT [None]
  - THYROID DISORDER [None]
  - THYROID NEOPLASM [None]
  - UPPER RESPIRATORY TRACT INFECTION [None]
  - VENOUS INSUFFICIENCY [None]
  - VERTIGO [None]
